FAERS Safety Report 8053819-2 (Version None)
Quarter: 2012Q1

REPORT INFORMATION
  Report Type: 
  Country: None (occurrence: None)
  Receive Date: 20120118
  Receipt Date: 20120111
  Transmission Date: 20120608
  Serious: Yes (Life-Threatening, Hospitalization, Other)
  Sender: FDA-Public Use
  Company Number: GB-ABBOTT-12P-167-0893286-00

PATIENT
  Age: 73 Year
  Sex: Male

DRUGS (2)
  1. CYPROTERONE [Suspect]
     Indication: PROSTATE CANCER
     Route: 048
     Dates: start: 20111020, end: 20111110
  2. LEUPROLIDE ACETATE [Suspect]
     Indication: PROSTATE CANCER
     Route: 058
     Dates: start: 20111110

REACTIONS (9)
  - ACTIVATED PARTIAL THROMBOPLASTIN TIME PROLONGED [None]
  - NAUSEA [None]
  - CONSTIPATION [None]
  - LIVER FUNCTION TEST ABNORMAL [None]
  - DECREASED APPETITE [None]
  - MALAISE [None]
  - JAUNDICE [None]
  - PROTHROMBIN TIME PROLONGED [None]
  - CHROMATURIA [None]
